FAERS Safety Report 16295612 (Version 1)
Quarter: 2019Q2

REPORT INFORMATION
  Report Type: Spontaneous
  Country: US (occurrence: US)
  Receive Date: 20190509
  Receipt Date: 20190509
  Transmission Date: 20190711
  Serious: No
  Sender: FDA-Public Use
  Company Number: US-SA-2019SA120325

PATIENT
  Age: 61 Year
  Sex: Female

DRUGS (1)
  1. XYZAL ALLERGY 24HR [Suspect]
     Active Substance: LEVOCETIRIZINE DIHYDROCHLORIDE
     Dosage: 1/2 TABLET ONCE DAILY
     Route: 065

REACTIONS (9)
  - Nasal discomfort [Unknown]
  - Dry mouth [Unknown]
  - Fatigue [Recovered/Resolved]
  - Mood altered [Recovered/Resolved]
  - Abdominal pain upper [Unknown]
  - Tremor [Recovered/Resolved]
  - Hangover [Unknown]
  - Rash pruritic [Recovered/Resolved]
  - Drug ineffective [Unknown]
